FAERS Safety Report 5847814-9 (Version None)
Quarter: 2008Q3

REPORT INFORMATION
  Report Type: 
  Country: None (occurrence: None)
  Receive Date: 20080814
  Receipt Date: 20080814
  Transmission Date: 20090109
  Serious: Yes (Other)
  Sender: FDA-Public Use
  Company Number: None

PATIENT
  Age: 24 Year
  Sex: Male

DRUGS (1)
  1. AMIDATE [Suspect]
     Indication: SEDATIVE THERAPY
     Dosage: 20 MG ONCE IV BOLUS
     Route: 040
     Dates: start: 20080810, end: 20080810

REACTIONS (2)
  - DRUG EFFECT DECREASED [None]
  - TREMOR [None]
